FAERS Safety Report 5984362-X (Version None)
Quarter: 2008Q4

REPORT INFORMATION
  Report Type: 
  Country: None (occurrence: None)
  Receive Date: 20081208
  Receipt Date: 20081201
  Transmission Date: 20090506
  Serious: Yes (Hospitalization)
  Sender: FDA-Public Use
  Company Number: PHEH2008US10725

PATIENT
  Age: 15 Year
  Sex: Male

DRUGS (1)
  1. FOCALIN XR [Suspect]

REACTIONS (3)
  - DIZZINESS [None]
  - DRUG ABUSE [None]
  - HEAD INJURY [None]
